FAERS Safety Report 16622429 (Version 2)
Quarter: 2019Q3

REPORT INFORMATION
  Report Type: Spontaneous
  Country: PT (occurrence: PT)
  Receive Date: 20190724
  Receipt Date: 20190812
  Transmission Date: 20191004
  Serious: Yes (Hospitalization, Other)
  Sender: FDA-Public Use
  Company Number: PT-TAKEDA-2019TUS044673

PATIENT
  Sex: Male

DRUGS (1)
  1. FEBUXOSTAT. [Suspect]
     Active Substance: FEBUXOSTAT
     Indication: GOUT
     Dosage: 40 MILLIGRAM, QD
     Route: 065

REACTIONS (3)
  - Dialysis [Unknown]
  - Cardiac failure [Unknown]
  - Renal impairment [Unknown]
